FAERS Safety Report 9949581 (Version 1)
Quarter: 2014Q1

REPORT INFORMATION
  Report Type: Spontaneous
  Country: HU (occurrence: HU)
  Receive Date: 20140304
  Receipt Date: 20140304
  Transmission Date: 20141002
  Serious: Yes (Other)
  Sender: FDA-Public Use
  Company Number: HU-ELI_LILLY_AND_COMPANY-HU201402009106

PATIENT
  Age: 34 Year
  Sex: Male

DRUGS (4)
  1. OLANZAPINE [Suspect]
     Indication: AGGRESSION
     Route: 065
  2. OLANZAPINE [Suspect]
     Indication: PSYCHOTIC DISORDER
  3. CLONAZEPAM [Suspect]
     Indication: AGGRESSION
  4. CLONAZEPAM [Suspect]
     Indication: PSYCHOTIC DISORDER

REACTIONS (1)
  - Delirium [Recovered/Resolved]
